FAERS Safety Report 17264150 (Version 2)
Quarter: 2020Q1

REPORT INFORMATION
  Report Type: Report from Study
  Country: US (occurrence: US)
  Receive Date: 20200113
  Receipt Date: 20200309
  Transmission Date: 20200409
  Serious: Yes (Hospitalization)
  Sender: FDA-Public Use
  Company Number: US-ACTELION-A-US2019-197513

PATIENT
  Age: 48 Year
  Sex: Female

DRUGS (10)
  1. SPIRONOLACTONE. [Concomitant]
     Active Substance: SPIRONOLACTONE
     Dosage: UNK
  2. LASIX [Concomitant]
     Active Substance: FUROSEMIDE
     Dosage: UNK
  3. LISINOPRIL. [Concomitant]
     Active Substance: LISINOPRIL
  4. COREG [Concomitant]
     Active Substance: CARVEDILOL
  5. DIGOXIN. [Concomitant]
     Active Substance: DIGOXIN
  6. METFORMIN [Concomitant]
     Active Substance: METFORMIN HYDROCHLORIDE
  7. OPSUMIT [Suspect]
     Active Substance: MACITENTAN
     Indication: PULMONARY ARTERIAL HYPERTENSION
     Dosage: 10 MG, QD
     Route: 048
     Dates: start: 20190918
  8. OXYGEN. [Concomitant]
     Active Substance: OXYGEN
  9. GLIPIZIDE. [Concomitant]
     Active Substance: GLIPIZIDE
  10. ADEMPAS [Concomitant]
     Active Substance: RIOCIGUAT

REACTIONS (7)
  - Vomiting [Recovered/Resolved]
  - Fluid retention [Not Recovered/Not Resolved]
  - Malaise [Unknown]
  - Skin abrasion [Recovered/Resolved]
  - Headache [Recovered/Resolved]
  - Hypotension [Unknown]
  - Syncope [Recovered/Resolved]

NARRATIVE: CASE EVENT DATE: 20191207
